FAERS Safety Report 19596627 (Version 1)
Quarter: 2021Q3

REPORT INFORMATION
  Report Type: Report from Study
  Country: US (occurrence: US)
  Receive Date: 20210723
  Receipt Date: 20210723
  Transmission Date: 20211014
  Serious: Yes (Hospitalization)
  Sender: FDA-Public Use
  Company Number: US-JNJFOC-20210728261

PATIENT
  Age: 4 Decade
  Sex: Female

DRUGS (1)
  1. MACITENTAN [Suspect]
     Active Substance: MACITENTAN
     Indication: PULMONARY ARTERIAL HYPERTENSION
     Dosage: TAKE 1 TABLET (10MG) BY MOUTH DAILY
     Route: 048
     Dates: start: 20180913

REACTIONS (2)
  - Blood disorder [Recovered/Resolved]
  - Infection [Recovered/Resolved]
